FAERS Safety Report 14963316 (Version 4)
Quarter: 2018Q4

REPORT INFORMATION
  Report Type: Spontaneous
  Country: IE (occurrence: IE)
  Receive Date: 20180601
  Receipt Date: 20181221
  Transmission Date: 20190204
  Serious: Yes (Hospitalization, Other)
  Sender: FDA-Public Use
  Company Number: IE-ASTRAZENECA-2018SE69921

PATIENT
  Age: 48 Year
  Sex: Male

DRUGS (8)
  1. SEROQUEL XR [Suspect]
     Active Substance: QUETIAPINE FUMARATE
     Indication: INSOMNIA
     Dosage: PRESCRIBED ON A PRN BASIS
     Route: 048
     Dates: start: 201601, end: 201608
  2. SEROQUEL XR [Suspect]
     Active Substance: QUETIAPINE FUMARATE
     Indication: INSOMNIA
     Route: 048
     Dates: start: 200608, end: 200812
  3. SEROQUEL XR [Suspect]
     Active Substance: QUETIAPINE FUMARATE
     Indication: INSOMNIA
     Dosage: UNKNOWN
     Route: 048
     Dates: start: 201501
  4. SEROQUEL XR [Suspect]
     Active Substance: QUETIAPINE FUMARATE
     Indication: INSOMNIA
     Dosage: 300 MG, TAPERED THE QUETIAPINE SLOWLY. TAPERED IT FROM 200 MG IN DECEMBER 2017 TO 150MG IN JANUAR...
     Route: 048
     Dates: start: 201611, end: 20180226
  5. SEROQUEL XR [Suspect]
     Active Substance: QUETIAPINE FUMARATE
     Indication: INSOMNIA
     Dosage: 200.0MG UNKNOWN
     Route: 048
     Dates: start: 201611
  6. LOSEC [Concomitant]
     Active Substance: OMEPRAZOLE
     Dosage: 20 MG, TWICE DAILY ,PRN
  7. AMITRIPTYLINE [Concomitant]
     Active Substance: AMITRIPTYLINE
     Indication: INSOMNIA
     Dosage: 10.0MG UNKNOWN
  8. PROMETHAZINE HYDROCHLORIDE. [Concomitant]
     Active Substance: PROMETHAZINE HYDROCHLORIDE

REACTIONS (71)
  - Neuropathy peripheral [Not Recovered/Not Resolved]
  - Flushing [Not Recovered/Not Resolved]
  - Diarrhoea [Recovering/Resolving]
  - Nail disorder [Not Recovered/Not Resolved]
  - Arthralgia [Not Recovered/Not Resolved]
  - Dyspepsia [Unknown]
  - Off label use [Unknown]
  - Suspected product tampering [Unknown]
  - Meibomian gland dysfunction [Not Recovered/Not Resolved]
  - Polycythaemia [Not Recovered/Not Resolved]
  - Feeling cold [Not Recovered/Not Resolved]
  - Candida infection [Not Recovered/Not Resolved]
  - Blepharitis [Unknown]
  - Skin exfoliation [Unknown]
  - Swelling [Not Recovered/Not Resolved]
  - Emotional distress [Not Recovered/Not Resolved]
  - Hyperferritinaemia [Not Recovered/Not Resolved]
  - Gastritis [Not Recovered/Not Resolved]
  - Laboratory test interference [Not Recovered/Not Resolved]
  - Body tinea [Unknown]
  - Paraesthesia [Not Recovered/Not Resolved]
  - Blood cholesterol increased [Recovering/Resolving]
  - Haemoglobin increased [Recovering/Resolving]
  - Body fat disorder [Not Recovered/Not Resolved]
  - Genital burning sensation [Not Recovered/Not Resolved]
  - Tinea pedis [Recovering/Resolving]
  - Paronychia [Not Recovered/Not Resolved]
  - Small airways disease [Not Recovered/Not Resolved]
  - Lymphocyte count increased [Not Recovered/Not Resolved]
  - Headache [Not Recovered/Not Resolved]
  - Fungal infection [Not Recovered/Not Resolved]
  - Onychomadesis [Not Recovered/Not Resolved]
  - Somnolence [Not Recovered/Not Resolved]
  - Rosacea [Unknown]
  - Perioral dermatitis [Unknown]
  - Lymphocytosis [Not Recovered/Not Resolved]
  - Tinea cruris [Unknown]
  - Seborrhoeic dermatitis [Unknown]
  - Lymphadenopathy [Not Recovered/Not Resolved]
  - Fatigue [Not Recovered/Not Resolved]
  - Malaise [Not Recovered/Not Resolved]
  - Onychomycosis [Not Recovered/Not Resolved]
  - Pruritus generalised [Not Recovered/Not Resolved]
  - Blood uric acid increased [Unknown]
  - Peripheral coldness [Not Recovered/Not Resolved]
  - Nausea [Not Recovered/Not Resolved]
  - Abdominal pain lower [Unknown]
  - Sputum discoloured [Unknown]
  - Nail discolouration [Not Recovered/Not Resolved]
  - Neuralgia [Not Recovered/Not Resolved]
  - Osteoporosis [Not Recovered/Not Resolved]
  - Skin papilloma [Unknown]
  - Burning sensation [Not Recovered/Not Resolved]
  - Hypoxia [Not Recovered/Not Resolved]
  - Hyperhidrosis [Not Recovered/Not Resolved]
  - Night sweats [Not Recovered/Not Resolved]
  - Vision blurred [Not Recovered/Not Resolved]
  - Blood triglycerides increased [Recovering/Resolving]
  - Oral herpes [Not Recovered/Not Resolved]
  - Rash pustular [Not Recovered/Not Resolved]
  - Lipoatrophy [Not Recovered/Not Resolved]
  - Non-alcoholic fatty liver [Not Recovered/Not Resolved]
  - Haematocrit increased [Recovering/Resolving]
  - Angular cheilitis [Unknown]
  - Dysgraphia [Not Recovered/Not Resolved]
  - Red blood cell count increased [Recovering/Resolving]
  - Cold sweat [Not Recovered/Not Resolved]
  - Bacterial infection [Not Recovered/Not Resolved]
  - Weight increased [Not Recovered/Not Resolved]
  - Acrochordon [Not Recovered/Not Resolved]
  - Drug ineffective [Unknown]

NARRATIVE: CASE EVENT DATE: 2005
